FAERS Safety Report 16527816 (Version 1)
Quarter: 2019Q3

REPORT INFORMATION
  Report Type: Spontaneous
  Country: PL (occurrence: PL)
  Receive Date: 20190703
  Receipt Date: 20190703
  Transmission Date: 20191004
  Serious: Yes (Death)
  Sender: FDA-Public Use
  Company Number: PL-PFIZER INC-2019280113

PATIENT
  Age: 73 Year
  Sex: Male
  Weight: 80 kg

DRUGS (1)
  1. SUTENT [Suspect]
     Active Substance: SUNITINIB MALATE
     Indication: RENAL CANCER
     Dosage: 50 MG, 1X/DAY (EVERY 24 HOURS)
     Route: 048
     Dates: start: 20190522, end: 20190610

REACTIONS (2)
  - Gastrointestinal necrosis [Fatal]
  - Necrotising oesophagitis [Fatal]

NARRATIVE: CASE EVENT DATE: 20190610
